FAERS Safety Report 18891882 (Version 3)
Quarter: 2021Q2

REPORT INFORMATION
  Report Type: Spontaneous
  Country: AU (occurrence: AU)
  Receive Date: 20210215
  Receipt Date: 20210427
  Transmission Date: 20210717
  Serious: Yes (Hospitalization, Other)
  Sender: FDA-Public Use
  Company Number: AU-BRISTOL-MYERS SQUIBB COMPANY-BMS-2021-013608

PATIENT
  Age: 57 Year
  Sex: Male
  Weight: 78 kg

DRUGS (3)
  1. ELIQUIS [Suspect]
     Active Substance: APIXABAN
     Indication: DEEP VEIN THROMBOSIS
     Dosage: 10 MILLIGRAM, BID
     Route: 048
  2. TAMSULOSIN [Suspect]
     Active Substance: TAMSULOSIN
     Indication: PROSTATOMEGALY
     Dosage: 400 MILLIGRAM DAILY
     Route: 048
  3. ELIQUIS [Suspect]
     Active Substance: APIXABAN
     Indication: PULMONARY EMBOLISM
     Dosage: 5 MILLIGRAM, BID
     Route: 048
     Dates: start: 20210128

REACTIONS (7)
  - Contusion [Unknown]
  - Tremor [Unknown]
  - Syncope [Unknown]
  - Fall [Unknown]
  - Head injury [Unknown]
  - Back pain [Unknown]
  - Concussion [Unknown]

NARRATIVE: CASE EVENT DATE: 20210201
